FAERS Safety Report 13471904 (Version 1)
Quarter: 2017Q2

REPORT INFORMATION
  Report Type: Spontaneous
  Country: US (occurrence: US)
  Receive Date: 20170424
  Receipt Date: 20170424
  Transmission Date: 20170830
  Serious: No
  Sender: FDA-Public Use
  Company Number: US-PFIZER INC-2017175375

PATIENT
  Sex: Female

DRUGS (1)
  1. TRIAZOLAM. [Suspect]
     Active Substance: TRIAZOLAM
     Indication: ANXIETY
     Dosage: UNK

REACTIONS (2)
  - Abdominal discomfort [Unknown]
  - Product use in unapproved indication [Unknown]
